FAERS Safety Report 8072844-9 (Version None)
Quarter: 2012Q1

REPORT INFORMATION
  Report Type: 
  Country: None (occurrence: None)
  Receive Date: 20120126
  Receipt Date: 20120119
  Transmission Date: 20120608
  Serious: Yes (Hospitalization, Other)
  Sender: FDA-Public Use
  Company Number: US-CELGENEUS-163-21880-12012043

PATIENT
  Sex: Female

DRUGS (4)
  1. TRANSFUSION [Concomitant]
     Dosage: 2 UNITS
     Route: 041
  2. REVLIMID [Suspect]
     Route: 048
  3. EXTRA STRENGTH TYLENOL [Concomitant]
     Route: 065
  4. TRAMADOL HCL [Concomitant]
     Route: 065

REACTIONS (4)
  - BLOOD LACTATE DEHYDROGENASE ABNORMAL [None]
  - MULTIPLE MYELOMA [None]
  - BACK PAIN [None]
  - ASPARTATE AMINOTRANSFERASE ABNORMAL [None]
